FAERS Safety Report 21583222 (Version 1)
Quarter: 2022Q4

REPORT INFORMATION
  Report Type: Spontaneous
  Country: US (occurrence: US)
  Receive Date: 20221111
  Receipt Date: 20221111
  Transmission Date: 20230112
  Serious: No
  Sender: FDA-Public Use
  Company Number: US-SA-SAC20221110000374

PATIENT
  Age: 62 Year
  Sex: Female
  Weight: 95.25 kg

DRUGS (17)
  1. DUPIXENT [Suspect]
     Active Substance: DUPILUMAB
     Indication: Dermatitis atopic
     Dosage: 600MG,1X
     Route: 058
     Dates: start: 20221020, end: 20221020
  2. DUPIXENT [Suspect]
     Active Substance: DUPILUMAB
     Indication: Illness
     Dosage: 300MG,QOW
     Route: 058
     Dates: start: 20221103
  3. FLUTICASONE PROPIONATE [Concomitant]
     Active Substance: FLUTICASONE PROPIONATE
     Dosage: UNK
  4. HYDROXYZINE HYDROCHLORIDE [Concomitant]
     Active Substance: HYDROXYZINE HYDROCHLORIDE
  5. MONTELUKAST SODIUM [Concomitant]
     Active Substance: MONTELUKAST SODIUM
  6. ALLEGRA ALLERGY [Concomitant]
     Active Substance: FEXOFENADINE HYDROCHLORIDE
  7. VITAMIN D NOS [Concomitant]
     Active Substance: VITAMIN D NOS
  8. CALCIUM [Concomitant]
     Active Substance: CALCIUM
  9. ASPIRIN [Concomitant]
     Active Substance: ASPIRIN
  10. POTASSIUM [Concomitant]
     Active Substance: POTASSIUM
  11. SIMVASTATIN [Concomitant]
     Active Substance: SIMVASTATIN
  12. FENOFIBRATE [Concomitant]
     Active Substance: FENOFIBRATE
  13. PREVACID [Concomitant]
     Active Substance: LANSOPRAZOLE
  14. TRIAMTERENE [Concomitant]
     Active Substance: TRIAMTERENE
  15. TRIAMCINOLONE ACETONIDE [Concomitant]
     Active Substance: TRIAMCINOLONE ACETONIDE
  16. PIMECROLIMUS [Concomitant]
     Active Substance: PIMECROLIMUS
  17. TACROLIMUS [Concomitant]
     Active Substance: TACROLIMUS

REACTIONS (5)
  - Sleep disorder [Not Recovered/Not Resolved]
  - Initial insomnia [Not Recovered/Not Resolved]
  - Dry skin [Not Recovered/Not Resolved]
  - Skin swelling [Not Recovered/Not Resolved]
  - Pruritus [Not Recovered/Not Resolved]

NARRATIVE: CASE EVENT DATE: 20221031
